FAERS Safety Report 8096719 (Version 2)
Quarter: 2013Q1

REPORT INFORMATION
  Report Type: Spontaneous
  Country: US (occurrence: US)
  Receive Date: 20110818
  Receipt Date: 20130226
  Transmission Date: 20140127
  Serious: Yes (Hospitalization)
  Sender: FDA-Public Use
  Company Number: US-BAYER-2011-072732

PATIENT
  Age: 33 Year
  Sex: Female

DRUGS (9)
  1. YASMIN [Suspect]
     Dosage: UNK
     Dates: start: 200312, end: 200402
  2. FLOVENT [Concomitant]
     Indication: ASTHMA
  3. ALBUTEROL [Concomitant]
     Indication: ASTHMA
  4. AVELOX [Concomitant]
  5. ADVAIR [Concomitant]
  6. SEREVENT [Concomitant]
  7. SOLUMEDROL [Concomitant]
  8. NEBULIZER [Concomitant]
  9. FERROUS SULFATE [Concomitant]
     Indication: ANAEMIA

REACTIONS (5)
  - Pulmonary embolism [Recovered/Resolved]
  - Injury [None]
  - Pain [Recovered/Resolved]
  - Anxiety [None]
  - Anhedonia [None]
